FAERS Safety Report 10003726 (Version 2)
Quarter: 2014Q2

REPORT INFORMATION
  Report Type: Spontaneous
  Country: AR (occurrence: AR)
  Receive Date: 20140312
  Receipt Date: 20140515
  Transmission Date: 20141212
  Serious: Yes (Hospitalization, Other)
  Sender: FDA-Public Use
  Company Number: PHHY2014AR029609

PATIENT
  Sex: Female

DRUGS (7)
  1. TEGRETOL [Suspect]
     Indication: CONVULSION
     Dosage: UNK UKN, UNK
     Route: 048
     Dates: start: 1995
  2. TEGRETOL [Interacting]
     Dosage: 4 UKN, PER DAY
     Dates: start: 19970827
  3. TEGRETOL [Interacting]
     Dosage: UNK
  4. DEPAKENE [Interacting]
     Indication: CONVULSION
     Dosage: UNK UKN, UNK
  5. DEPAKENE [Interacting]
     Dosage: DOSE REDUCED
  6. EPAMIN [Concomitant]
     Dosage: UNK UKN, UNK
     Dates: start: 19950411
  7. BENZODIAZEPINES [Concomitant]
     Indication: CONVULSION
     Dosage: UNK UKN, UNK

REACTIONS (20)
  - Convulsion [Unknown]
  - Dyspnoea [Unknown]
  - Skin discolouration [Unknown]
  - Lip discolouration [Unknown]
  - Status epilepticus [Unknown]
  - Epilepsy [Unknown]
  - Fall [Unknown]
  - Tooth loss [Unknown]
  - Central nervous system lesion [Unknown]
  - Cognitive disorder [Unknown]
  - Drug withdrawal syndrome [Unknown]
  - Quality of life decreased [Unknown]
  - General physical health deterioration [Unknown]
  - Mental impairment [Unknown]
  - Disorientation [Unknown]
  - Affect lability [Unknown]
  - Gait disturbance [Unknown]
  - Speech disorder [Unknown]
  - Anticonvulsant drug level decreased [Unknown]
  - Drug effect decreased [Unknown]
